FAERS Safety Report 12660640 (Version 2)
Quarter: 2016Q3

REPORT INFORMATION
  Report Type: Spontaneous
  Country: US (occurrence: US)
  Receive Date: 20160817
  Receipt Date: 20160901
  Transmission Date: 20161109
  Serious: No
  Sender: FDA-Public Use
  Company Number: US-RELYPSA-RLY2016001019

PATIENT
  Age: 70 Year
  Sex: Male

DRUGS (20)
  1. ATENOLOL. [Concomitant]
     Active Substance: ATENOLOL
  2. DIOVAN [Concomitant]
     Active Substance: VALSARTAN
  3. VELTASSA [Suspect]
     Active Substance: PATIROMER
     Indication: HYPERKALAEMIA
     Dosage: UNK
     Route: 065
  4. TACROLIMUS. [Concomitant]
     Active Substance: TACROLIMUS
  5. FUROSEMIDE. [Concomitant]
     Active Substance: FUROSEMIDE
  6. LOPID [Concomitant]
     Active Substance: GEMFIBROZIL
  7. CALCIUM CARBONATE. [Concomitant]
     Active Substance: CALCIUM CARBONATE
  8. LISINOPRIL. [Concomitant]
     Active Substance: LISINOPRIL
  9. LORAZEPAM. [Concomitant]
     Active Substance: LORAZEPAM
  10. HUMALOG [Concomitant]
     Active Substance: INSULIN LISPRO
  11. LANTUS [Concomitant]
     Active Substance: INSULIN GLARGINE
  12. VALSARTAN. [Concomitant]
     Active Substance: VALSARTAN
  13. AMLODIPINE BESYLATE. [Concomitant]
     Active Substance: AMLODIPINE BESYLATE
  14. BETHANECHOL CLORIDE [Concomitant]
  15. VITAMIN B12 [Concomitant]
     Active Substance: CYANOCOBALAMIN
  16. ASPIRIN                            /00002701/ [Concomitant]
     Active Substance: ASPIRIN
  17. CLONIDINE HCL [Concomitant]
     Active Substance: CLONIDINE HYDROCHLORIDE
  18. FLOMAX [Concomitant]
     Active Substance: TAMSULOSIN HYDROCHLORIDE
  19. GABAPENTIN. [Concomitant]
     Active Substance: GABAPENTIN
  20. MULTIVITAMIN                       /00097801/ [Concomitant]
     Active Substance: VITAMINS

REACTIONS (1)
  - Diarrhoea [Unknown]

NARRATIVE: CASE EVENT DATE: 20160608
